FAERS Safety Report 18998638 (Version 1)
Quarter: 2021Q1

REPORT INFORMATION
  Report Type: Spontaneous
  Country: GB (occurrence: GB)
  Receive Date: 20210312
  Receipt Date: 20210312
  Transmission Date: 20210420
  Serious: No
  Sender: FDA-Public Use
  Company Number: GB-ALKEM LABORATORIES LIMITED-GB-ALKEM-2020-09073

PATIENT
  Age: 72 Year
  Sex: Female
  Weight: 92 kg

DRUGS (6)
  1. SOLIFENACIN [Suspect]
     Active Substance: SOLIFENACIN
     Indication: PRODUCT USED FOR UNKNOWN INDICATION
     Dosage: ONE TO BE TAKEN EACH DAY
     Route: 065
     Dates: start: 20200901
  2. MIRABEGRON [Concomitant]
     Active Substance: MIRABEGRON
     Indication: PRODUCT USED FOR UNKNOWN INDICATION
     Dosage: ONE TO BE TAKEN EACH DAY AS PER UROLOGIST ADVICE
     Route: 065
     Dates: start: 20201013, end: 20201020
  3. NITROFURANTOIN. [Concomitant]
     Active Substance: NITROFURANTOIN
     Indication: PRODUCT USED FOR UNKNOWN INDICATION
     Dosage: ONE TO BE TAKEN TWICE A DAY
     Route: 065
     Dates: start: 20200914, end: 20201013
  4. RAMIPRIL. [Concomitant]
     Active Substance: RAMIPRIL
     Indication: PRODUCT USED FOR UNKNOWN INDICATION
     Dosage: ONE TO BE TAKEN EACH DAY
     Route: 065
     Dates: start: 20201014
  5. ATENOLOL. [Concomitant]
     Active Substance: ATENOLOL
     Indication: PRODUCT USED FOR UNKNOWN INDICATION
     Dosage: ONE TO BE TAKEN EACH DAY
     Route: 065
     Dates: start: 20201014
  6. TRIMOVATE [Concomitant]
     Active Substance: CLOBETASONE BUTYRATE\NYSTATIN\OXYTETRACYCLINE CALCIUM
     Indication: PRODUCT USED FOR UNKNOWN INDICATION
     Dosage: APPLY, THREE TIMES/DAY
     Route: 065
     Dates: start: 20200914

REACTIONS (1)
  - Cystitis [Unknown]
